FAERS Safety Report 7375046-4 (Version None)
Quarter: 2011Q1

REPORT INFORMATION
  Report Type: 
  Country: None (occurrence: None)
  Receive Date: 20110315
  Receipt Date: 20110302
  Transmission Date: 20110831
  Serious: Yes (Hospitalization)
  Sender: FDA-Public Use
  Company Number: 2011MA002155

PATIENT
  Age: 33 Year
  Sex: Male

DRUGS (6)
  1. ALPRAZOLAM [Suspect]
     Indication: PRODUCT USED FOR UNKNOWN INDICATION
     Dosage: 50 GTT; QD; PO
     Route: 048
     Dates: start: 20110224, end: 20110224
  2. ROCEPHIN [Concomitant]
  3. KLACID [Concomitant]
  4. ALPRAZOLAM [Suspect]
     Indication: PRODUCT USED FOR UNKNOWN INDICATION
     Dosage: 50 GTT; QD; PO
     Route: 048
     Dates: start: 20110224, end: 20110224
  5. ALPRAZOLAM [Suspect]
     Indication: PRODUCT USED FOR UNKNOWN INDICATION
     Dosage: 50 GTT; QD; PO
     Route: 048
     Dates: start: 20110224, end: 20110224
  6. BROMAZEPAM (BROMAZEPAM) [Suspect]
     Indication: PRODUCT USED FOR UNKNOWN INDICATION
     Dosage: 50 GTT; QD; PO
     Route: 048
     Dates: start: 20110223, end: 20110223

REACTIONS (3)
  - DEPRESSED LEVEL OF CONSCIOUSNESS [None]
  - DRUG SCREEN POSITIVE [None]
  - BRADYKINESIA [None]
